FAERS Safety Report 4297418-7 (Version None)
Quarter: 2004Q1

REPORT INFORMATION
  Report Type: 
  Country: None (occurrence: None)
  Receive Date: 20040218
  Receipt Date: 20040210
  Transmission Date: 20041129
  Serious: Yes (Death, Other)
  Sender: FDA-Public Use
  Company Number: PHBS2004DE02072

PATIENT
  Age: 56 Year
  Sex: Female

DRUGS (2)
  1. CYCLOSPORINE [Suspect]
     Indication: LIVER TRANSPLANT
     Route: 065
  2. PREDNISONE [Concomitant]
     Dosage: 100 MG/DAY

REACTIONS (2)
  - LIVER TRANSPLANT REJECTION [None]
  - SEPSIS [None]
